FAERS Safety Report 4478141-2 (Version None)
Quarter: 2004Q4

REPORT INFORMATION
  Report Type: 
  Country: None (occurrence: None)
  Receive Date: 20041013
  Receipt Date: 20040930
  Transmission Date: 20050328
  Serious: Yes (Hospitalization)
  Sender: FDA-Public Use
  Company Number: 2004074344

PATIENT
  Age: 71 Year
  Sex: Male
  Weight: 77 kg

DRUGS (11)
  1. SORTIS (ATORVASTATIN) [Suspect]
     Indication: HYPERLIPIDAEMIA
     Dosage: 10 MG (10 MG, 1 IN 1 D), ORAL
     Route: 048
  2. PHENPROCOUMON (PHENPROCOUMON) [Suspect]
     Indication: THROMBOSIS PROPHYLAXIS
     Dosage: 3 MG (3 MG, 1 IN 1 D), ORAL
     Route: 048
     Dates: start: 20030501, end: 20040402
  3. ALENDRONATE SODIUM [Suspect]
     Indication: OSTEOPOROSIS
     Dosage: 70 MG (70 MG, 1 IN 1 D), ORAL
     Route: 048
     Dates: start: 20030101
  4. SPIRONOLACTONE [Suspect]
     Indication: OEDEMA
     Dosage: 25 MG (25 MG, 1 IN 1 D), ORAL
     Route: 048
  5. RAMIPRIL [Concomitant]
  6. CARVEDILOL [Concomitant]
  7. INSULIN GLARGINE (INSULIN GLARGINE) [Concomitant]
  8. INSULIN ASPART [Concomitant]
  9. TORSEMIDE [Concomitant]
  10. THEOPHYLLINE [Concomitant]
  11. SERETIDE MITE (FLUTICASONE PROPIONATE, SALMETEROL XINAFOATE) [Concomitant]

REACTIONS (8)
  - BLOOD PRODUCT TRANSFUSION [None]
  - DRUG INTERACTION [None]
  - GASTRODUODENITIS HAEMORRHAGIC [None]
  - HIATUS HERNIA [None]
  - HYPERHIDROSIS [None]
  - OEDEMA [None]
  - OSTEOPOROSIS [None]
  - REFLUX OESOPHAGITIS [None]
